FAERS Safety Report 25577158 (Version 3)
Quarter: 2025Q3

REPORT INFORMATION
  Report Type: Spontaneous
  Country: US (occurrence: US)
  Receive Date: 20250718
  Receipt Date: 20250828
  Transmission Date: 20251021
  Serious: No
  Sender: BRISTOL-MYERS SQUIBB COMPANY
  Company Number: US-BRISTOL-MYERS SQUIBB COMPANY-2025-101310

PATIENT
  Age: 80 Year
  Sex: Male

DRUGS (2)
  1. POMALYST [Suspect]
     Active Substance: POMALIDOMIDE
     Indication: Blood disorder
     Dosage: REDUCED DOSE FROM 4 MG DOWN TO 3 MG
     Route: 048
     Dates: start: 20250626
  2. POMALYST [Suspect]
     Active Substance: POMALIDOMIDE
     Dosage: FREQUENCY: TAKE 1 WHOLE CAPSULE BY MOUTH WITH WATER AT SAME TIME DAILY ON EMPTY STOMACH 2HRS BEFORE
     Route: 048

REACTIONS (4)
  - Platelet count abnormal [Unknown]
  - Contusion [Unknown]
  - Off label use [Unknown]
  - Gastrointestinal disorder [Not Recovered/Not Resolved]
